FAERS Safety Report 7082719 (Version 2)
Quarter: 2013Q1

REPORT INFORMATION
  Report Type: Spontaneous
  Country: SE (occurrence: None)
  Receive Date: 20090806
  Receipt Date: 20130102
  Transmission Date: 20140127
  Serious: Yes (Life-Threatening, Hospitalization)
  Sender: FDA-Public Use
  Company Number: 2009EU002884

PATIENT
  Age: 39 Year
  Sex: Female

DRUGS (16)
  1. TACROLIMUS SYSTEMIC (TACROLIMUS) [Suspect]
     Route: 048
     Dates: start: 20030424
  2. MYCOPHENOLATE MOFETIL [Suspect]
     Dosage: UID/QD
     Route: 048
     Dates: start: 20021204
  3. DACLIZUMAB [Suspect]
     Dosage: TOTAL DOSE?
     Route: 042
     Dates: start: 20021204
  4. METHYLPREDNISOLONE [Suspect]
     Dosage: UID/QD
     Route: 042
     Dates: start: 20030206, end: 20030209
  5. PREDNISOLONE (PREDNISOLONE) [Suspect]
     Dosage: UID/QD
     Route: 048
     Dates: start: 20021204, end: 20021204
  6. CICLOSPORIN (CICLOSPORIN) [Suspect]
     Indication: RENAL TRANSPLANT
     Dosage: UID/QD
     Route: 048
     Dates: start: 20021204, end: 20021204
  7. IMIPENEM (IMIPENEM) [Concomitant]
  8. INSULIN LISPRO (INSULIN LISPRO) [Concomitant]
  9. IRBESARTAN (IRBESARTAN) [Concomitant]
  10. CLOXACILLIN (CLOXACILLIN SODIUM) [Concomitant]
  11. METOPROLOL (METOPROLOL SUCCINATE) [Concomitant]
  12. CEFUROXIME (CEFUROXIME) [Concomitant]
  13. CEFOTAXIME (CEFOTAXIME SODIUM) [Concomitant]
  14. PIPERACILLINE (PIPERACILLIN SODIUM) [Concomitant]
  15. AMOXICILLIN (AMOXICILLIN) [Concomitant]
  16. EPOETIN ALFA [Concomitant]

REACTIONS (6)
  - PSEUDOMONAS INFECTION [None]
  - PERIPHERAL ISCHAEMIA [None]
  - FLUID OVERLOAD [None]
  - STAPHYLOCOCCAL SEPSIS [None]
  - ENTEROBACTER SEPSIS [None]
  - KLEBSIELLA SEPSIS [None]
